FAERS Safety Report 5444162-6 (Version None)
Quarter: 2007Q3

REPORT INFORMATION
  Report Type: 
  Country: None (occurrence: None)
  Receive Date: 20070904
  Receipt Date: 20070904
  Transmission Date: 20080115
  Serious: Yes (Other)
  Sender: FDA-Public Use
  Company Number: None

PATIENT
  Age: 31 Year
  Sex: Female
  Weight: 52.1637 kg

DRUGS (2)
  1. KLONOPIN [Suspect]
     Indication: DEPRESSION
     Dosage: 3 DAILY
     Dates: start: 20030610
  2. KLONOPIN [Suspect]
     Indication: POST-TRAUMATIC STRESS DISORDER
     Dosage: 3 DAILY
     Dates: start: 20030610

REACTIONS (2)
  - AGITATION [None]
  - PARADOXICAL DRUG REACTION [None]
